FAERS Safety Report 8309153-6 (Version None)
Quarter: 2012Q2

REPORT INFORMATION
  Report Type: 
  Country: None (occurrence: None)
  Receive Date: 20120424
  Receipt Date: 20120416
  Transmission Date: 20120825
  Serious: Yes (Other)
  Sender: FDA-Public Use
  Company Number: US-AMGEN-USASP2011000664

PATIENT
  Age: 91 Year
  Sex: Female
  Weight: 56.236 kg

DRUGS (9)
  1. ENBREL [Suspect]
     Indication: ARTHRITIS
  2. ATARAX [Concomitant]
     Dosage: UNK
  3. ENBREL [Suspect]
     Indication: PSORIASIS
     Dosage: 50 MG, QWK
     Dates: start: 20060515
  4. NITROFURANTOIN [Concomitant]
     Dosage: UNK
  5. PRILOSEC [Concomitant]
     Dosage: UNK
  6. GLUCOSAMINE CHONDROITIN [Concomitant]
     Dosage: UNK
  7. ATENOLOL [Concomitant]
     Dosage: UNK
  8. LIPITOR [Concomitant]
     Dosage: UNK
  9. LYRICA [Concomitant]

REACTIONS (7)
  - BALANCE DISORDER [None]
  - NEEDLE ISSUE [None]
  - DEAFNESS [None]
  - WALKING AID USER [None]
  - ACOUSTIC NEUROMA [None]
  - VERTIGO [None]
  - HEADACHE [None]
